FAERS Safety Report 23507881 (Version 1)
Quarter: 2024Q1

REPORT INFORMATION
  Report Type: Spontaneous
  Country: US (occurrence: None)
  Receive Date: 20240209
  Receipt Date: 20240209
  Transmission Date: 20240410
  Serious: No
  Sender: FDA-Public Use
  Company Number: None

PATIENT
  Sex: Male

DRUGS (2)
  1. LENALIDOMIDE [Suspect]
     Active Substance: LENALIDOMIDE
     Indication: Plasma cell myeloma
     Dosage: 25MG ORAL?? TAKE 1 CAPSULE BY MOUTH 1 TIME A DAY FOR 14 DAYS ON THEN 7 DAYS OFF??
     Route: 048
     Dates: start: 202309
  2. NYVEPRIA [Concomitant]
     Active Substance: PEGFILGRASTIM-APGF

REACTIONS (2)
  - Intentional dose omission [None]
  - Surgery [None]
